FAERS Safety Report 16523773 (Version 1)
Quarter: 2019Q3

REPORT INFORMATION
  Report Type: Spontaneous
  Country: US (occurrence: US)
  Receive Date: 20190703
  Receipt Date: 20190703
  Transmission Date: 20191004
  Serious: No
  Sender: FDA-Public Use
  Company Number: US-PFIZER INC-2019283559

PATIENT
  Sex: Male

DRUGS (1)
  1. NITROGLYCERIN. [Suspect]
     Active Substance: NITROGLYCERIN
     Indication: CARDIAC DISORDER
     Dosage: UNK

REACTIONS (1)
  - Drug ineffective [Unknown]
